FAERS Safety Report 12376108 (Version 3)
Quarter: 2016Q2

REPORT INFORMATION
  Report Type: Spontaneous
  Country: US (occurrence: US)
  Receive Date: 20160517
  Receipt Date: 20160630
  Transmission Date: 20160815
  Serious: Yes (Hospitalization, Other)
  Sender: FDA-Public Use
  Company Number: US-ASTRAZENECA-2016SE50714

PATIENT
  Age: 726 Month
  Sex: Female
  Weight: 88.5 kg

DRUGS (2)
  1. SYMBICORT [Suspect]
     Active Substance: BUDESONIDE\FORMOTEROL FUMARATE DIHYDRATE
     Indication: ASTHMA
     Dosage: 160/4.5 MCG, TWO TIMES A DAY AS REQUIRED
     Route: 055
  2. SYMBICORT [Suspect]
     Active Substance: BUDESONIDE\FORMOTEROL FUMARATE DIHYDRATE
     Indication: ASTHMA
     Dosage: UNKNOWN DOSE, AS REQUIRED AS REQUIRED
     Route: 055

REACTIONS (7)
  - Fall [Unknown]
  - Foot fracture [Unknown]
  - Intentional product use issue [Unknown]
  - Bronchitis [Unknown]
  - Device malfunction [Unknown]
  - Gait disturbance [Unknown]
  - Aphonia [Unknown]

NARRATIVE: CASE EVENT DATE: 201510
